FAERS Safety Report 17672883 (Version 4)
Quarter: 2020Q3

REPORT INFORMATION
  Report Type: Spontaneous
  Country: US (occurrence: US)
  Receive Date: 20200415
  Receipt Date: 20200908
  Transmission Date: 20201102
  Serious: Yes (Hospitalization, Other)
  Sender: FDA-Public Use
  Company Number: US-PFIZER INC-2020155050

PATIENT
  Age: 73 Year
  Sex: Female
  Weight: 50 kg

DRUGS (1)
  1. LYRICA [Suspect]
     Active Substance: PREGABALIN
     Indication: NEUROPATHY PERIPHERAL
     Dosage: 50 MG, TWO IN THE MORNING, AND ONE OR TWO AT NIGHT
     Route: 048

REACTIONS (7)
  - Myocardial infarction [Unknown]
  - Fall [Unknown]
  - Dementia [Unknown]
  - Asthenia [Unknown]
  - Loss of consciousness [Unknown]
  - Muscular weakness [Unknown]
  - Arthritis [Unknown]

NARRATIVE: CASE EVENT DATE: 202001
